FAERS Safety Report 7660218-1 (Version None)
Quarter: 2011Q3

REPORT INFORMATION
  Report Type: 
  Country: None (occurrence: None)
  Receive Date: 20110805
  Receipt Date: 20110728
  Transmission Date: 20111222
  Serious: Yes (Other)
  Sender: FDA-Public Use
  Company Number: PHEH2011US00511

PATIENT
  Sex: Male

DRUGS (3)
  1. CELEBREX [Concomitant]
     Dosage: 200 MG,PER DAY
  2. AREDIA [Suspect]
     Indication: MULTIPLE MYELOMA
  3. AREDIA [Suspect]
     Indication: OSTEOPOROSIS PROPHYLAXIS
     Dosage: PER MONTHLY
     Dates: end: 20020101

REACTIONS (22)
  - HYPOAESTHESIA [None]
  - VOMITING [None]
  - DIVERTICULUM INTESTINAL [None]
  - ARTHRALGIA [None]
  - NAUSEA [None]
  - NEPHROLITHIASIS [None]
  - TONGUE AMYLOIDOSIS [None]
  - ABASIA [None]
  - DYSAESTHESIA [None]
  - DIABETIC GASTROPARESIS [None]
  - PAIN OF SKIN [None]
  - BONE PAIN [None]
  - OSTEOMYELITIS [None]
  - INTERVERTEBRAL DISC DEGENERATION [None]
  - INTERVERTEBRAL DISC PROTRUSION [None]
  - OSTEOLYSIS [None]
  - ORTHOSTATIC HYPOTENSION [None]
  - ABDOMINAL PAIN [None]
  - DEPRESSION [None]
  - COMPRESSION FRACTURE [None]
  - PARAESTHESIA [None]
  - BACK PAIN [None]
